FAERS Safety Report 8462810-3 (Version None)
Quarter: 2012Q2

REPORT INFORMATION
  Report Type: 
  Country: None (occurrence: None)
  Receive Date: 20120619
  Receipt Date: 20120619
  Transmission Date: 20120825
  Serious: Yes (Hospitalization)
  Sender: FDA-Public Use
  Company Number: None

PATIENT
  Sex: Male
  Weight: 80 kg

DRUGS (1)
  1. ALFA 2 INTERFERON 2B (INTRON-A) [Suspect]
     Dosage: 20 MU
     Dates: end: 20120611

REACTIONS (4)
  - CELLULITIS [None]
  - NO THERAPEUTIC RESPONSE [None]
  - SEROMA [None]
  - IMPAIRED HEALING [None]
